FAERS Safety Report 7990492-3 (Version None)
Quarter: 2011Q4

REPORT INFORMATION
  Report Type: 
  Country: None (occurrence: None)
  Receive Date: 20111219
  Receipt Date: 20110428
  Transmission Date: 20120403
  Serious: No
  Sender: FDA-Public Use
  Company Number: US-ASTRAZENECA-2007UW27355

PATIENT
  Age: 60 Year
  Sex: Male
  Weight: 117.9 kg

DRUGS (7)
  1. CRESTOR [Suspect]
     Indication: BLOOD CHOLESTEROL INCREASED
     Route: 048
     Dates: start: 20071126
  2. CRESTOR [Suspect]
     Route: 048
     Dates: start: 20040101, end: 20110401
  3. WARFARIN SODIUM [Concomitant]
  4. LOPRESSOR [Concomitant]
  5. NEXIUM [Concomitant]
  6. LIBRAX [Concomitant]
  7. XANAX [Concomitant]

REACTIONS (3)
  - PRURITUS GENERALISED [None]
  - OEDEMA PERIPHERAL [None]
  - POLLAKIURIA [None]
